FAERS Safety Report 7761181-5 (Version None)
Quarter: 2011Q3

REPORT INFORMATION
  Report Type: 
  Country: None (occurrence: None)
  Receive Date: 20110920
  Receipt Date: 20110906
  Transmission Date: 20111222
  Serious: Yes (Hospitalization)
  Sender: FDA-Public Use
  Company Number: JP-JNJFOC-20110906716

PATIENT
  Sex: Male
  Weight: 57 kg

DRUGS (12)
  1. DEXAMETHASONE [Suspect]
     Indication: MULTIPLE MYELOMA
     Route: 048
     Dates: start: 20110214, end: 20110818
  2. MUCOSTA [Concomitant]
     Indication: GASTRITIS PROPHYLAXIS
     Route: 048
     Dates: start: 20110214
  3. ACYCLOVIR [Concomitant]
     Indication: ANTIVIRAL PROPHYLAXIS
     Route: 048
     Dates: start: 20110214
  4. FAMOTIDINE [Concomitant]
     Indication: GASTRITIS PROPHYLAXIS
     Route: 048
     Dates: start: 20110214
  5. PANOBINOSTAT(LBH589) [Suspect]
     Indication: MULTIPLE MYELOMA
     Route: 048
     Dates: start: 20110214, end: 20110821
  6. TOMIRON [Concomitant]
     Indication: NASOPHARYNGITIS
     Route: 048
     Dates: start: 20110822, end: 20110823
  7. VELCADE [Suspect]
     Indication: MULTIPLE MYELOMA
     Route: 042
     Dates: start: 20110214, end: 20110817
  8. NON-PYRINE COLD PREPARATION [Concomitant]
     Indication: NASOPHARYNGITIS
     Route: 048
     Dates: start: 20110822, end: 20110823
  9. LOPERAMIDE HCL [Suspect]
     Indication: DIARRHOEA
     Route: 048
     Dates: start: 20110428
  10. ALLOID G [Concomitant]
     Indication: ABDOMINAL DISCOMFORT
     Route: 065
     Dates: start: 20110609
  11. BIO-THREE [Concomitant]
     Indication: DIARRHOEA
     Route: 048
     Dates: start: 20110516
  12. BITSAN [Concomitant]
     Indication: EPIGASTRIC DISCOMFORT
     Route: 048
     Dates: start: 20110425

REACTIONS (1)
  - BRONCHOPNEUMONIA [None]
